FAERS Safety Report 8482961-7 (Version None)
Quarter: 2012Q2

REPORT INFORMATION
  Report Type: 
  Country: None (occurrence: None)
  Receive Date: 20120626
  Receipt Date: 20120620
  Transmission Date: 20120825
  Serious: Yes (Hospitalization)
  Sender: FDA-Public Use
  Company Number: 2012SP015285

PATIENT
  Age: 38 Year
  Sex: Female
  Weight: 61.6892 kg

DRUGS (1)
  1. NUVARING [Suspect]
     Indication: CONTRACEPTION
     Dates: start: 20090201, end: 20090401

REACTIONS (8)
  - HEADACHE [None]
  - MIGRAINE [None]
  - ATELECTASIS [None]
  - INJURY [None]
  - NECK PAIN [None]
  - PULMONARY EMBOLISM [None]
  - MUSCULOSKELETAL PAIN [None]
  - PULMONARY INFARCTION [None]
